FAERS Safety Report 8614909 (Version 2)
Quarter: 2012Q4

REPORT INFORMATION
  Report Type: Report from Study
  Country: JP (occurrence: JP)
  Receive Date: 20120614
  Receipt Date: 20121217
  Transmission Date: 20130627
  Serious: Yes (Hospitalization)
  Sender: FDA-Public Use
  Company Number: JP-GLAXOSMITHKLINE-B0806836A

PATIENT
  Age: 82 Year
  Sex: Female
  Weight: 46 kg

DRUGS (4)
  1. TYKERB [Suspect]
     Indication: BREAST CANCER
     Route: 048
     Dates: start: 20120403
  2. TAMOXIFEN [Concomitant]
     Indication: BREAST CANCER
     Route: 048
     Dates: end: 20120528
  3. PYDOXAL [Concomitant]
     Indication: SKIN DISORDER
     Route: 048
     Dates: start: 20120403
  4. HIRUDOID [Concomitant]
     Indication: SKIN DISORDER
     Route: 061
     Dates: start: 20120403

REACTIONS (1)
  - Dyspnoea [Recovered/Resolved]
